FAERS Safety Report 6536905-5 (Version None)
Quarter: 2010Q1

REPORT INFORMATION
  Report Type: 
  Country: None (occurrence: None)
  Receive Date: 20100105
  Receipt Date: 20091224
  Transmission Date: 20100710
  Serious: Yes (Hospitalization)
  Sender: FDA-Public Use
  Company Number: 2009US004525

PATIENT
  Age: 15 Year
  Sex: Male

DRUGS (23)
  1. AMBISOME [Suspect]
     Indication: FUNGAL INFECTION
     Dosage: 100 MG, UID/QD, IV NOS
     Route: 042
     Dates: start: 20091026
  2. PIPERACILLIN AND TAZOBACTAM [Suspect]
     Indication: RESPIRATORY TRACT INFECTION
     Dosage: 3.2 G, Q6 HOURS, IV NOS
     Route: 042
     Dates: start: 20091021, end: 20091028
  3. NEUPOGEN [Suspect]
     Indication: APLASIA
     Dosage: 30 MIU, UID/QD, IV NOS
     Route: 042
     Dates: start: 20091021, end: 20091030
  4. BACTRIM DS [Concomitant]
  5. VALACYCLOVIR HCL [Concomitant]
  6. PRIMAXIN [Concomitant]
  7. VITAMIN K ( VITAMIN K NOS) [Concomitant]
  8. PRIMPERAN TAB [Concomitant]
  9. LANSOPRAZOLE [Concomitant]
  10. PAROXETINE HCL [Concomitant]
  11. ZOFRAN [Concomitant]
  12. PURINETHOL [Concomitant]
  13. DECTANCYL (DEXAMETHASONE ACETATE) [Concomitant]
  14. LASIX [Concomitant]
  15. LARGACTIL (CHLORPROMAZINE) [Concomitant]
  16. INEXIUM (ESOMEPRAZOLE SODIUM) [Concomitant]
  17. RIVOTRIL (CLONAZEPAM) [Concomitant]
  18. PANTOPRAZOLE SODIUM [Concomitant]
  19. ACETAMINOPHEN [Concomitant]
  20. ZOLOFT [Concomitant]
  21. XANAX [Concomitant]
  22. FLAGYL [Concomitant]
  23. AMIKIN [Concomitant]

REACTIONS (2)
  - CHOLESTASIS [None]
  - HEPATOMEGALY [None]
